FAERS Safety Report 9024633 (Version 1)
Quarter: 2013Q1

REPORT INFORMATION
  Report Type: Spontaneous
  Country: JP (occurrence: JP)
  Receive Date: 20130120
  Receipt Date: 20130120
  Transmission Date: 20140127
  Serious: Yes (Other)
  Sender: FDA-Public Use
  Company Number: PHHY2013JP004490

PATIENT
  Sex: Female

DRUGS (1)
  1. CEFTRIAXONE [Suspect]
     Indication: UPPER RESPIRATORY TRACT INFLAMMATION
     Dosage: 500 MG, UNK
     Route: 042

REACTIONS (5)
  - Renal failure acute [Recovering/Resolving]
  - Oedema [Recovering/Resolving]
  - Oliguria [Recovering/Resolving]
  - Kidney fibrosis [Recovering/Resolving]
  - Tubulointerstitial nephritis [Recovering/Resolving]
